FAERS Safety Report 17365342 (Version 1)
Quarter: 2020Q1

REPORT INFORMATION
  Report Type: Spontaneous
  Country: US (occurrence: US)
  Receive Date: 20200204
  Receipt Date: 20200204
  Transmission Date: 20200409
  Serious: No
  Sender: FDA-Public Use
  Company Number: NVSC2020US027135

PATIENT
  Sex: Female

DRUGS (1)
  1. RIBOCICLIB. [Suspect]
     Active Substance: RIBOCICLIB
     Indication: BREAST CANCER
     Dosage: 600 MG, UNKNOWN (3 WEEKS ON AND 1 WEEK OFF)
     Route: 048
     Dates: start: 201906

REACTIONS (2)
  - Cough [Unknown]
  - Pneumonitis [Unknown]
